FAERS Safety Report 17230012 (Version 2)
Quarter: 2020Q1

REPORT INFORMATION
  Report Type: Report from Study
  Country: US (occurrence: US)
  Receive Date: 20200103
  Receipt Date: 20200204
  Transmission Date: 20200409
  Serious: Yes (Hospitalization, Other)
  Sender: FDA-Public Use
  Company Number: US-BAYER-2019-215146

PATIENT
  Age: 53 Year
  Sex: Male

DRUGS (1)
  1. STIVARGA [Suspect]
     Active Substance: REGORAFENIB
     Indication: HEPATOCELLULAR CARCINOMA
     Dosage: 120 MG, QD 21 DAYS ON AND 7 DAYS OFF
     Route: 048
     Dates: start: 20191112, end: 201912

REACTIONS (5)
  - Skin disorder [None]
  - Weight decreased [Not Recovered/Not Resolved]
  - Hepatocellular carcinoma [Unknown]
  - Off label use [None]
  - Drug ineffective [Unknown]

NARRATIVE: CASE EVENT DATE: 20191112
